FAERS Safety Report 8622082-3 (Version None)
Quarter: 2012Q3

REPORT INFORMATION
  Report Type: 
  Country: None (occurrence: None)
  Receive Date: 20120822
  Receipt Date: 20120822
  Transmission Date: 20120928
  Serious: Yes (Hospitalization)
  Sender: FDA-Public Use
  Company Number: None

PATIENT
  Age: 70 Year
  Sex: Male
  Weight: 104.3 kg

DRUGS (2)
  1. VELCADE [Suspect]
     Indication: CHRONIC LYMPHOCYTIC LEUKAEMIA
     Dosage: 3.6 MG  D1, D8 IV
     Route: 042
     Dates: start: 20120730, end: 20120806
  2. TORISEL [Suspect]
     Indication: CHRONIC LYMPHOCYTIC LEUKAEMIA
     Dosage: 25 MG D1, D8 IV
     Route: 042
     Dates: start: 20120730, end: 20120806

REACTIONS (3)
  - THROMBOCYTOPENIA [None]
  - PNEUMONIA [None]
  - GROIN PAIN [None]
